FAERS Safety Report 10182045 (Version 2)
Quarter: 2014Q2

REPORT INFORMATION
  Report Type: Report from Study
  Country: BR (occurrence: BR)
  Receive Date: 20140519
  Receipt Date: 20140519
  Transmission Date: 20141212
  Serious: Yes (Death, Hospitalization)
  Sender: FDA-Public Use
  Company Number: BR-US-EMD SERONO, INC.-7264660

PATIENT
  Age: 60 Year
  Sex: Male

DRUGS (1)
  1. REBIF [Suspect]
     Indication: MULTIPLE SCLEROSIS
     Dates: start: 20061218, end: 20140312

REACTIONS (4)
  - Multi-organ failure [Fatal]
  - Disease progression [Fatal]
  - Depressed level of consciousness [Unknown]
  - Movement disorder [Not Recovered/Not Resolved]
